FAERS Safety Report 8863389 (Version 2)
Quarter: 2012Q4

REPORT INFORMATION
  Report Type: 
  Country: ES (occurrence: ES)
  Receive Date: 20121024
  Receipt Date: 20121112
  Transmission Date: 20130627
  Serious: Yes (Hospitalization)
  Sender: FDA-Public Use
  Company Number: ES-PFIZER INC-2012261183

PATIENT
  Age: 78 Year
  Sex: Female

DRUGS (1)
  1. ZYVOXID [Suspect]
     Indication: OSTEOMYELITIS
     Dosage: UNK
     Route: 048
     Dates: start: 20120425, end: 20120622

REACTIONS (1)
  - Bicytopenia [Unknown]
